FAERS Safety Report 18842577 (Version 1)
Quarter: 2021Q1

REPORT INFORMATION
  Report Type: Spontaneous
  Country: US (occurrence: US)
  Receive Date: 20210203
  Receipt Date: 20210203
  Transmission Date: 20210419
  Serious: No
  Sender: FDA-Public Use
  Company Number: US-BAUSCH-BL-2020-039185

PATIENT
  Age: 71 Year
  Sex: Female

DRUGS (1)
  1. LUMIFY [Suspect]
     Active Substance: BRIMONIDINE TARTRATE
     Indication: OCULAR HYPERAEMIA
     Dosage: USUALLY INSTILLED 1 DROP IN EACH EYE ONCE DAILY BUT SOMETIMES SHE WOULD USE THE PRODUCT TWICE DAILY
     Route: 047
     Dates: start: 2019, end: 202012

REACTIONS (5)
  - Ocular discomfort [Recovered/Resolved]
  - Excessive eye blinking [Recovered/Resolved]
  - Inappropriate schedule of product administration [Unknown]
  - Eye irritation [Recovered/Resolved]
  - Dry eye [Recovered/Resolved]

NARRATIVE: CASE EVENT DATE: 2019
